FAERS Safety Report 7405161-8 (Version None)
Quarter: 2011Q2

REPORT INFORMATION
  Report Type: 
  Country: None (occurrence: None)
  Receive Date: 20110411
  Receipt Date: 20110404
  Transmission Date: 20111010
  Serious: Yes (Other)
  Sender: FDA-Public Use
  Company Number: JP-BRISTOL-MYERS SQUIBB COMPANY-15510407

PATIENT
  Age: 41 Year
  Sex: Female

DRUGS (1)
  1. ABILIFY [Suspect]
     Indication: SCHIZOPHRENIA
     Dosage: INCREASED TO 24MG AND 30MG;AND GRADUALLY DECREASED TO 24MG
     Route: 048

REACTIONS (8)
  - AMENORRHOEA [None]
  - DEPRESSED MOOD [None]
  - ANXIETY [None]
  - SCHIZOPHRENIA [None]
  - AKATHISIA [None]
  - DELUSION [None]
  - PSYCHOTIC DISORDER [None]
  - HALLUCINATION [None]
